FAERS Safety Report 4300894-4 (Version None)
Quarter: 2004Q1

REPORT INFORMATION
  Report Type: 
  Country: None (occurrence: None)
  Receive Date: 20040220
  Receipt Date: 20030411
  Transmission Date: 20041129
  Serious: Yes (Hospitalization, Other)
  Sender: FDA-Public Use
  Company Number: WAES 0304USA01386

PATIENT
  Age: 66 Year
  Sex: Female
  Weight: 90 kg

DRUGS (5)
  1. PREMARIN [Concomitant]
  2. LODINE [Concomitant]
     Dates: end: 20000112
  3. SYNTHROID [Concomitant]
  4. VIOXX [Suspect]
     Indication: BACK PAIN
     Route: 048
     Dates: start: 20000101, end: 20000101
  5. VIOXX [Suspect]
     Route: 048

REACTIONS (25)
  - ANAEMIA [None]
  - AORTIC STENOSIS [None]
  - ATRIAL FIBRILLATION [None]
  - BACK INJURY [None]
  - CARDIOMEGALY [None]
  - CYSTOCELE [None]
  - DEPRESSION [None]
  - EMOTIONAL DISTRESS [None]
  - FATIGUE [None]
  - INJURY [None]
  - INTERMITTENT CLAUDICATION [None]
  - INTERVERTEBRAL DISC DEGENERATION [None]
  - MEDICATION ERROR [None]
  - MYOCARDIAL INFARCTION [None]
  - MYOFASCIAL PAIN SYNDROME [None]
  - OEDEMA PERIPHERAL [None]
  - PIRIFORMIS SYNDROME [None]
  - PLEURAL EFFUSION [None]
  - PULMONARY HYPERTENSION [None]
  - PULMONARY OEDEMA [None]
  - RECTOCELE [None]
  - SCIATICA [None]
  - SPONDYLOSIS [None]
  - SUPRAVENTRICULAR TACHYCARDIA [None]
  - THERAPEUTIC RESPONSE DECREASED [None]
